FAERS Safety Report 23907486 (Version 2)
Quarter: 2024Q2

REPORT INFORMATION
  Report Type: Spontaneous
  Country: US (occurrence: US)
  Receive Date: 20240528
  Receipt Date: 20240604
  Transmission Date: 20240716
  Serious: No
  Sender: FDA-Public Use
  Company Number: US-MYLANLABS-2024M1046145

PATIENT
  Sex: Male
  Weight: 129.27 kg

DRUGS (1)
  1. VALSARTAN [Suspect]
     Active Substance: VALSARTAN
     Indication: Blood pressure increased
     Dosage: 40 MILLIGRAM, QD
     Route: 048
     Dates: end: 20240517

REACTIONS (11)
  - Constipation [Unknown]
  - Vision blurred [Recovered/Resolved]
  - Glassy eyes [Recovered/Resolved]
  - Abdominal distension [Unknown]
  - Weight decreased [Unknown]
  - Pollakiuria [Unknown]
  - Dehydration [Unknown]
  - Therapy cessation [Unknown]
  - Fatigue [Unknown]
  - Asthenia [Unknown]
  - Product size issue [Unknown]
